FAERS Safety Report 18287926 (Version 1)
Quarter: 2020Q3

REPORT INFORMATION
  Report Type: Spontaneous
  Country: NL (occurrence: NL)
  Receive Date: 20200921
  Receipt Date: 20200921
  Transmission Date: 20201103
  Serious: Yes (Other)
  Sender: FDA-Public Use
  Company Number: NL-MYLANLABS-2020M1080189

PATIENT
  Age: 57 Year
  Sex: Male
  Weight: 80 kg

DRUGS (9)
  1. OXAZEPAM. [Interacting]
     Active Substance: OXAZEPAM
     Dosage: TABLET, 10 MG (MILLIGRAM)
  2. CEFTRIAXON [Concomitant]
     Active Substance: CEFTRIAXONE
     Dosage: OPLOSSING VOOR INFUUS, 2000 MG (MILLIGRAM)
  3. PANTOPRAZOL                        /01263201/ [Concomitant]
     Active Substance: PANTOPRAZOLE
     Dosage: MAAGSAPRESISTENTE TABLET, 40 MG (MILLIGRAM)
  4. LOPERAMIDE [Concomitant]
     Active Substance: LOPERAMIDE
     Dosage: CAPSULE, 2 MG (MILLIGRAM)
  5. AZITHROMYCIN ANHYDROUS. [Suspect]
     Active Substance: AZITHROMYCIN ANHYDROUS
     Indication: PNEUMONIA
     Dosage: 1 DD 1 TABLET
     Dates: start: 20200821, end: 20200824
  6. CODEINE [Suspect]
     Active Substance: CODEINE
     Indication: COUGH
     Dosage: 2 DD 1 TABLET EN OM 22:00 2 TABLETTEN
     Dates: start: 20200823, end: 20200824
  7. ENOXAPARIN [Concomitant]
     Active Substance: ENOXAPARIN
     Dosage: INJECTIEVLOEISTOF, 10.000 IE/ML (EENHEDEN PER MILLILITER)
  8. REMDESIVIR. [Suspect]
     Active Substance: REMDESIVIR
     Indication: COVID-19
     Dosage: 1 DD 100 MG
     Dates: start: 20200821, end: 20200825
  9. DEXAMETHASON                       /00016001/ [Concomitant]
     Active Substance: DEXAMETHASONE
     Dosage: INJECTIEVLOEISTOF, 1 MG/ML (MILLIGRAM PER MILLILITER)

REACTIONS (1)
  - Bradycardia [Recovered/Resolved]

NARRATIVE: CASE EVENT DATE: 20200823
